FAERS Safety Report 23268811 (Version 2)
Quarter: 2024Q1

REPORT INFORMATION
  Report Type: Report from Study
  Country: GB (occurrence: GB)
  Receive Date: 20231206
  Receipt Date: 20240201
  Transmission Date: 20240409
  Serious: Yes (Other)
  Sender: FDA-Public Use
  Company Number: GB-SANDOZ-SDZ2023GB053745

PATIENT
  Sex: Female

DRUGS (2)
  1. HYRIMOZ [Suspect]
     Active Substance: ADALIMUMAB-ADAZ
     Indication: Rheumatoid arthritis
     Dosage: 40 MG, Q2W (EOW); 40 MG/0.8 ML PRE-FILLED PENS, 2 PRE-FILLED DISPOSABLE INJECTION
     Route: 058
     Dates: start: 20231030
  2. HYRIMOZ [Suspect]
     Active Substance: ADALIMUMAB-ADAZ
     Indication: Uveitis

REACTIONS (6)
  - Uveitis [Unknown]
  - Diverticulitis [Unknown]
  - Malaise [Unknown]
  - Anxiety [Unknown]
  - Periorbital swelling [Unknown]
  - Inappropriate schedule of product administration [Unknown]
